FAERS Safety Report 23946260 (Version 1)
Quarter: 2024Q2

REPORT INFORMATION
  Report Type: Spontaneous
  Country: US (occurrence: US)
  Receive Date: 20240606
  Receipt Date: 20240606
  Transmission Date: 20240716
  Serious: Yes (Other)
  Sender: FDA-Public Use
  Company Number: US-INCYTE CORPORATION-2024IN005911

PATIENT

DRUGS (25)
  1. JAKAFI [Suspect]
     Active Substance: RUXOLITINIB
     Indication: Myelofibrosis
     Dosage: UNK
     Route: 065
     Dates: start: 20150420, end: 20220316
  2. JAKAFI [Suspect]
     Active Substance: RUXOLITINIB
     Dosage: 10 MILLIGRAM, 2/DAYS
     Route: 048
     Dates: start: 20220317
  3. NAVITOCLAX [Suspect]
     Active Substance: NAVITOCLAX
     Indication: Myelofibrosis
     Dosage: 75 MILLIGRAM, EVERY 1 DAY AND 50 MG EVERY 1 DAY
     Route: 048
     Dates: start: 20220317, end: 20240411
  4. NAVITOCLAX [Suspect]
     Active Substance: NAVITOCLAX
     Dosage: 75 MILLIGRAM, EVERY 1 DAY AND 50 MG EVERY 1 DAY
     Route: 048
     Dates: start: 20240411
  5. AMITIZA [Concomitant]
     Active Substance: LUBIPROSTONE
     Indication: Irritable bowel syndrome
     Dosage: 24 MICROGRAM, QD
     Route: 065
     Dates: start: 20160419
  6. BIOTIN;CALCIUM PHOSPHATE DIBASIC [Concomitant]
     Indication: Vitamin supplementation
     Dosage: 1000 MICROGRAM, QD
     Route: 065
     Dates: start: 20130930
  7. BUSPIRONE HYDROCHLORIDE [Concomitant]
     Active Substance: BUSPIRONE HYDROCHLORIDE
     Indication: Depression
     Dosage: 10 MILLIGRAM, BID
     Route: 065
     Dates: start: 20230418
  8. CALCIUM CARBONATE [Concomitant]
     Active Substance: CALCIUM CARBONATE
     Indication: Gastrooesophageal reflux disease
     Dosage: 500 MILLIGRAM, QD
     Route: 065
     Dates: start: 20220323
  9. CLONAZEPAM [Concomitant]
     Active Substance: CLONAZEPAM
     Indication: Anxiety
     Dosage: 1 MILLIGRAM, QOD
     Route: 065
     Dates: start: 20220413
  10. DULOXETINE [Concomitant]
     Active Substance: DULOXETINE
     Indication: Anxiety
     Dosage: 60 MILLIGRAM, QD
     Route: 065
     Dates: start: 20230418
  11. DULOXETINE [Concomitant]
     Active Substance: DULOXETINE
     Indication: Depression
  12. ESOMEPRAZOLE SODIUM [Concomitant]
     Active Substance: ESOMEPRAZOLE SODIUM
     Indication: Irritable bowel syndrome
     Dosage: 40 MILLIGRAM, QD
     Route: 065
     Dates: start: 20141002
  13. LEVOTHYROXINE SODIUM [Concomitant]
     Active Substance: LEVOTHYROXINE SODIUM
     Indication: Hypothyroidism
     Dosage: 80 MICROGRAM
     Route: 065
     Dates: start: 20161016
  14. MOTRAX [LINACLOTIDE] [Concomitant]
     Indication: Irritable bowel syndrome
     Dosage: 290 MICROGRAM, QD
     Route: 065
     Dates: start: 20141002
  15. CALCIUM PANTOTHENATE;CHOLINE;CYANOCOBALAMIN;NICOTINAMIDE;PYRIDOXINE HY [Concomitant]
     Indication: Supplementation therapy
     Dosage: 1 DOSAGE FORM, QD
     Route: 065
     Dates: start: 2023
  16. OMEPRAZOLE SODIUM [Concomitant]
     Active Substance: OMEPRAZOLE SODIUM
     Indication: Gastrooesophageal reflux disease
     Dosage: 40 MILLIGRAM, QD
     Route: 065
     Dates: start: 20160711
  17. PANTOPRAZOLE SODIUM [Concomitant]
     Active Substance: PANTOPRAZOLE SODIUM
     Indication: Gastrooesophageal reflux disease
     Dosage: 40 MILLIGRAM, BID
     Route: 065
     Dates: start: 20231113
  18. PANTOPRAZOLE SODIUM [Concomitant]
     Active Substance: PANTOPRAZOLE SODIUM
     Indication: Irritable bowel syndrome
  19. PEGINTERFERON ALFA-2A [Concomitant]
     Active Substance: PEGINTERFERON ALFA-2A
     Indication: Dyspepsia
     Dosage: 46.8 MICROGRAM, EVERY 2 WEEKS
     Route: 065
     Dates: start: 20210616
  20. RANITIDINE HYDROCHLORIDE [Concomitant]
     Active Substance: RANITIDINE HYDROCHLORIDE
     Indication: Irritable bowel syndrome
     Dosage: 300 MILLIGRAM, QD
     Route: 065
     Dates: start: 20180516
  21. SIMETHICONE (DIMETHICONE) [Concomitant]
     Active Substance: DIMETHICONE
     Indication: Irritable bowel syndrome
     Dosage: 80 MILLIGRAM, PRN
     Route: 065
     Dates: start: 20231205
  22. SUCRALFATE [Concomitant]
     Active Substance: SUCRALFATE
     Indication: Gastrooesophageal reflux disease
     Dosage: 1 GRAM, 4/DAYS
     Route: 065
     Dates: start: 20240118
  23. IBSRELA [Concomitant]
     Active Substance: TENAPANOR HYDROCHLORIDE
     Indication: Irritable bowel syndrome
     Dosage: 1 DOSAGE FORM, EVERY 1 DAYS
     Route: 065
     Dates: start: 20230923
  24. TOPIRAMATE [Concomitant]
     Active Substance: TOPIRAMATE
     Indication: Migraine
     Dosage: 100 MILLIGRAM, QD
     Route: 065
     Dates: start: 20230930
  25. TRAZODONE HYDROCHLORIDE [Concomitant]
     Active Substance: TRAZODONE HYDROCHLORIDE
     Indication: Depression
     Dosage: 2 DOSAGE FORM, EVERY 1 DAYS
     Route: 065
     Dates: start: 20180503

REACTIONS (15)
  - Basal cell carcinoma [Not Recovered/Not Resolved]
  - Encephalopathy [Unknown]
  - Thrombocytopenia [Recovered/Resolved]
  - Pruritus [Not Recovered/Not Resolved]
  - Dehydration [Not Recovered/Not Resolved]
  - Erythromelalgia [Not Recovered/Not Resolved]
  - Fatigue [Not Recovered/Not Resolved]
  - Night sweats [Not Recovered/Not Resolved]
  - Overweight [Not Recovered/Not Resolved]
  - Vomiting [Not Recovered/Not Resolved]
  - Dysarthria [Unknown]
  - SARS-CoV-2 test positive [Unknown]
  - Vitamin B12 deficiency [Unknown]
  - Hyperuricaemia [Unknown]
  - Nausea [Not Recovered/Not Resolved]

NARRATIVE: CASE EVENT DATE: 20170101
